FAERS Safety Report 11005122 (Version 1)
Quarter: 2015Q2

REPORT INFORMATION
  Report Type: Spontaneous
  Country: US (occurrence: None)
  Receive Date: 20150408
  Receipt Date: 20150408
  Transmission Date: 20150821
  Serious: No
  Sender: FDA-Public Use
  Company Number: None

PATIENT
  Age: 18 Year
  Sex: Female

DRUGS (2)
  1. SERTRALINE [Suspect]
     Active Substance: SERTRALINE HYDROCHLORIDE
     Indication: DEPRESSION
     Dates: start: 20130905, end: 20130911
  2. NIMODIPINE. [Suspect]
     Active Substance: NIMODIPINE
     Indication: HYPERTENSION
     Dates: start: 20130905, end: 20130911

REACTIONS (8)
  - Granulomatous liver disease [None]
  - Treatment noncompliance [None]
  - Drug-induced liver injury [None]
  - Aspartate aminotransferase increased [None]
  - White blood cell count decreased [None]
  - Pleural effusion [None]
  - Blood alkaline phosphatase increased [None]
  - Red blood cell count decreased [None]

NARRATIVE: CASE EVENT DATE: 20130908
